FAERS Safety Report 7465355-2 (Version None)
Quarter: 2011Q1

REPORT INFORMATION
  Report Type: 
  Country: None (occurrence: None)
  Receive Date: 20110302
  Receipt Date: 20100928
  Transmission Date: 20110831
  Serious: Yes (Death)
  Sender: FDA-Public Use
  Company Number: 163-21880-10072526

PATIENT
  Age: 74 Year
  Sex: Female

DRUGS (8)
  1. REVLIMID [Suspect]
     Indication: MULTIPLE MYELOMA
     Dosage: 10 MG, 1 IN 1 D, PO, 10 MG, 1 IN 1 D, PO, 15 MG, DAILY X 21, PO, 15 MG, DAILY X 21, PO
     Route: 048
     Dates: start: 20100501, end: 20100101
  2. REVLIMID [Suspect]
     Indication: BONE DISORDER
     Dosage: 10 MG, 1 IN 1 D, PO, 10 MG, 1 IN 1 D, PO, 15 MG, DAILY X 21, PO, 15 MG, DAILY X 21, PO
     Route: 048
     Dates: start: 20100501, end: 20100101
  3. REVLIMID [Suspect]
     Indication: MULTIPLE MYELOMA
     Dosage: 10 MG, 1 IN 1 D, PO, 10 MG, 1 IN 1 D, PO, 15 MG, DAILY X 21, PO, 15 MG, DAILY X 21, PO
     Route: 048
     Dates: start: 20070319
  4. REVLIMID [Suspect]
     Indication: BONE DISORDER
     Dosage: 10 MG, 1 IN 1 D, PO, 10 MG, 1 IN 1 D, PO, 15 MG, DAILY X 21, PO, 15 MG, DAILY X 21, PO
     Route: 048
     Dates: start: 20070319
  5. REVLIMID [Suspect]
     Indication: MULTIPLE MYELOMA
     Dosage: 10 MG, 1 IN 1 D, PO, 10 MG, 1 IN 1 D, PO, 15 MG, DAILY X 21, PO, 15 MG, DAILY X 21, PO
     Route: 048
     Dates: start: 20071001
  6. REVLIMID [Suspect]
     Indication: BONE DISORDER
     Dosage: 10 MG, 1 IN 1 D, PO, 10 MG, 1 IN 1 D, PO, 15 MG, DAILY X 21, PO, 15 MG, DAILY X 21, PO
     Route: 048
     Dates: start: 20071001
  7. REVLIMID [Suspect]
     Indication: MULTIPLE MYELOMA
     Dosage: 10 MG, 1 IN 1 D, PO, 10 MG, 1 IN 1 D, PO, 15 MG, DAILY X 21, PO, 15 MG, DAILY X 21, PO
     Route: 048
     Dates: start: 20090901
  8. REVLIMID [Suspect]
     Indication: BONE DISORDER
     Dosage: 10 MG, 1 IN 1 D, PO, 10 MG, 1 IN 1 D, PO, 15 MG, DAILY X 21, PO, 15 MG, DAILY X 21, PO
     Route: 048
     Dates: start: 20090901

REACTIONS (1)
  - MULTIPLE MYELOMA [None]
